FAERS Safety Report 5891543-2 (Version None)
Quarter: 2008Q3

REPORT INFORMATION
  Report Type: 
  Country: None (occurrence: None)
  Receive Date: 20080922
  Receipt Date: 20070313
  Transmission Date: 20090109
  Serious: Yes (Hospitalization, Disabling)
  Sender: FDA-Public Use
  Company Number: IT-ROCHE-571406

PATIENT
  Sex: Male

DRUGS (2)
  1. PEGASYS [Suspect]
     Route: 065
     Dates: start: 20060522, end: 20080124
  2. RIBAVIRIN [Suspect]
     Route: 065
     Dates: start: 20060522, end: 20080124

REACTIONS (2)
  - ABDOMINAL PAIN [None]
  - HAEMORRHOIDS [None]
